FAERS Safety Report 17977696 (Version 1)
Quarter: 2020Q3

REPORT INFORMATION
  Report Type: Spontaneous
  Country: IN (occurrence: IN)
  Receive Date: 20200703
  Receipt Date: 20200703
  Transmission Date: 20201103
  Serious: No
  Sender: FDA-Public Use
  Company Number: IN-LUPIN LIMITED-2019-03588

PATIENT
  Age: 2 Year
  Sex: Male

DRUGS (3)
  1. ODOXIL SUSP DRY 250 MG/5 ML [Suspect]
     Active Substance: CEFADROXIL
     Indication: HEAD INJURY
     Dosage: 1 MILLIGRAM, QD
     Route: 048
     Dates: start: 20190531
  2. ODOXIL SUSP DRY 250 MG/5 ML [Suspect]
     Active Substance: CEFADROXIL
     Dosage: 5 MILLIGRAM, QD
     Route: 048
     Dates: start: 20190606
  3. IBUGESIC [Concomitant]
     Indication: HEAD INJURY
     Dosage: 5 MILLIGRAM, BID
     Route: 065
     Dates: start: 20190531

REACTIONS (2)
  - No adverse event [Unknown]
  - Incorrect dose administered [Unknown]

NARRATIVE: CASE EVENT DATE: 20190606
